FAERS Safety Report 15214021 (Version 2)
Quarter: 2018Q3

REPORT INFORMATION
  Report Type: Spontaneous
  Country: US (occurrence: US)
  Receive Date: 20180730
  Receipt Date: 20180801
  Transmission Date: 20181010
  Serious: No
  Sender: FDA-Public Use
  Company Number: US-SA-2018SA199679

PATIENT
  Age: 61 Year
  Sex: Male

DRUGS (4)
  1. PRALUENT [Suspect]
     Active Substance: ALIROCUMAB
     Indication: HYPERLIPIDAEMIA
     Dosage: 75 MG, QOW
     Route: 058
     Dates: start: 20180714
  2. ALIROCUMAB PREFILLED PEN [Suspect]
     Active Substance: ALIROCUMAB
     Indication: TYPE IIA HYPERLIPIDAEMIA
  3. PRALUENT [Suspect]
     Active Substance: ALIROCUMAB
     Indication: TYPE IIA HYPERLIPIDAEMIA
  4. ALIROCUMAB PREFILLED PEN [Suspect]
     Active Substance: ALIROCUMAB
     Indication: HYPERLIPIDAEMIA
     Dosage: UNK, QOW
     Route: 058
     Dates: start: 20180714

REACTIONS (14)
  - Abdominal pain upper [Unknown]
  - Oral mucosal blistering [Recovered/Resolved]
  - Burning sensation [Recovered/Resolved]
  - Chills [Unknown]
  - Ear pain [Unknown]
  - Rhinorrhoea [Unknown]
  - Dysgeusia [Unknown]
  - Depressed mood [Unknown]
  - Nausea [Unknown]
  - Hyperhidrosis [Unknown]
  - Oropharyngeal pain [Unknown]
  - Diarrhoea [Unknown]
  - Dysphagia [Unknown]
  - Back pain [Unknown]

NARRATIVE: CASE EVENT DATE: 20180714
